FAERS Safety Report 9944003 (Version 1)
Quarter: 2014Q1

REPORT INFORMATION
  Report Type: Report from Study
  Country: US (occurrence: US)
  Receive Date: 20140303
  Receipt Date: 20140303
  Transmission Date: 20141002
  Serious: No
  Sender: FDA-Public Use
  Company Number: US-ABBVIE-13P-163-1049946-00

PATIENT
  Age: 45 Year
  Sex: Male

DRUGS (7)
  1. HUMIRA [Suspect]
     Indication: PSORIATIC ARTHROPATHY
     Route: 058
     Dates: start: 2011
  2. HUMIRA [Suspect]
     Indication: PSORIASIS
  3. UNKNOWN MEDICATION [Concomitant]
     Indication: BLOOD PRESSURE
  4. UNKNOWN MEDICATION [Concomitant]
     Indication: DEPRESSION
  5. UNKNOWN MEDICATION [Concomitant]
     Indication: BLOOD CHOLESTEROL INCREASED
  6. IBUPROFEN [Concomitant]
     Indication: PSORIATIC ARTHROPATHY
  7. STERIOD CREAM [Concomitant]
     Indication: PSORIASIS

REACTIONS (1)
  - Psoriatic arthropathy [Not Recovered/Not Resolved]
